FAERS Safety Report 5816367-3 (Version None)
Quarter: 2008Q3

REPORT INFORMATION
  Report Type: 
  Country: None (occurrence: None)
  Receive Date: 20080721
  Receipt Date: 20070814
  Transmission Date: 20090109
  Serious: No
  Sender: FDA-Public Use
  Company Number: US-BAUSCH-2008BL001113

PATIENT
  Age: 62 Year
  Sex: Male

DRUGS (2)
  1. OPCON-A [Suspect]
     Indication: EYE PRURITUS
     Route: 047
     Dates: end: 20070814
  2. OPCON-A [Suspect]
     Route: 047
     Dates: end: 20070814

REACTIONS (2)
  - EYE IRRITATION [None]
  - PTERYGIUM [None]
